FAERS Safety Report 10608710 (Version 6)
Quarter: 2015Q3

REPORT INFORMATION
  Report Type: Spontaneous
  Country: US (occurrence: US)
  Receive Date: 20141125
  Receipt Date: 20150819
  Transmission Date: 20151125
  Serious: Yes (Death, Hospitalization, Other)
  Sender: FDA-Public Use
  Company Number: US-009507513-1411USA011809

PATIENT
  Sex: Male
  Weight: 90.7 kg

DRUGS (1)
  1. JANUMET [Suspect]
     Active Substance: METFORMIN HYDROCHLORIDE\SITAGLIPTIN PHOSPHATE
     Indication: TYPE 2 DIABETES MELLITUS
     Dosage: 50/1000 MG, 1 TABLET, BID
     Route: 048
     Dates: start: 20100514, end: 20120613

REACTIONS (71)
  - Anaemia [Unknown]
  - Anxiety [Unknown]
  - Adverse event [Unknown]
  - Abscess drainage [Unknown]
  - Duodenal obstruction [Unknown]
  - Diabetes mellitus inadequate control [Unknown]
  - Tachycardia [Unknown]
  - Anaemia [Unknown]
  - Bilirubin urine [Unknown]
  - Blood alkaline phosphatase increased [Unknown]
  - Back pain [Unknown]
  - Gastrointestinal haemorrhage [Fatal]
  - Liver abscess [Unknown]
  - Large intestine perforation [Unknown]
  - Pancreatic stent placement [Unknown]
  - Blood pressure inadequately controlled [Unknown]
  - Paranasal sinus discomfort [Unknown]
  - Hypercholesterolaemia [Unknown]
  - Haemoglobin decreased [Unknown]
  - Adenocarcinoma pancreas [Fatal]
  - Pancreatic stent placement [Unknown]
  - Sinus tachycardia [Unknown]
  - Cholelithiasis [Unknown]
  - Stent placement [Unknown]
  - Bladder dilatation [Unknown]
  - Pleural effusion [Unknown]
  - Atelectasis [Unknown]
  - Confusional state [Recovered/Resolved]
  - Metastases to liver [Unknown]
  - Pneumobilia [Unknown]
  - Neuropathy peripheral [Unknown]
  - Pancreatic stent placement [Unknown]
  - Chest pain [Unknown]
  - Umbilical hernia [Unknown]
  - Oesophageal motility disorder [Unknown]
  - Adverse event [Unknown]
  - Arthralgia [Unknown]
  - Pericardial effusion [Unknown]
  - Depression [Unknown]
  - Insomnia [Unknown]
  - Insulin-requiring type 2 diabetes mellitus [Unknown]
  - Pancreatic sphincterotomy [Unknown]
  - Pneumoperitoneum [Unknown]
  - Stent placement [Unknown]
  - Pneumonia [Unknown]
  - Neurodegenerative disorder [Unknown]
  - Abnormal behaviour [Recovered/Resolved]
  - Hypothyroidism [Unknown]
  - Vomiting [Recovered/Resolved]
  - Haematocrit decreased [Unknown]
  - Sinus congestion [Unknown]
  - Erectile dysfunction [Unknown]
  - Anaemia [Unknown]
  - Abdominal pain upper [Unknown]
  - Hyperthyroidism [Unknown]
  - Prostatic calcification [Unknown]
  - Obstruction gastric [Unknown]
  - Lung infiltration [Unknown]
  - Streptococcal infection [Unknown]
  - Cough [Unknown]
  - Fatigue [Unknown]
  - Diarrhoea [Unknown]
  - Hypokalaemia [Unknown]
  - Malnutrition [Unknown]
  - Metastases to peritoneum [Unknown]
  - Pancreatitis [Unknown]
  - Nausea [Recovered/Resolved]
  - Jaundice cholestatic [Recovered/Resolved]
  - Bile duct stent insertion [Unknown]
  - Catheter placement [Unknown]
  - Pruritus [Unknown]

NARRATIVE: CASE EVENT DATE: 2012
